FAERS Safety Report 6275126-0 (Version None)
Quarter: 2009Q3

REPORT INFORMATION
  Report Type: 
  Country: None (occurrence: None)
  Receive Date: 20090721
  Receipt Date: 20080320
  Transmission Date: 20100115
  Serious: Yes (Hospitalization, Other)
  Sender: FDA-Public Use
  Company Number: US-ASTRAZENECA-2008UW01511

PATIENT
  Age: 17252 Day
  Sex: Female
  Weight: 68 kg

DRUGS (31)
  1. SEROQUEL [Suspect]
     Indication: DEPRESSION
     Dosage: VARIOUS DOSES, 100 MG
     Route: 048
     Dates: start: 20010801, end: 20070601
  2. SEROQUEL [Suspect]
     Dosage: 100 - 200 MG
     Route: 048
     Dates: start: 20030927
  3. PHEN-FEN [Concomitant]
     Indication: WEIGHT CONTROL
     Route: 048
     Dates: start: 19980101
  4. ZOLOFT [Concomitant]
     Dates: start: 20050101
  5. WELLBUTRIN [Concomitant]
     Dates: start: 20010101
  6. VERELAN [Concomitant]
  7. ASPIRIN [Concomitant]
  8. TOPROL-XL [Concomitant]
  9. VALIUM [Concomitant]
  10. FOSAMAX [Concomitant]
  11. PREVACID [Concomitant]
  12. PHENERGAN [Concomitant]
  13. ATIVAN [Concomitant]
  14. AMBIEN [Concomitant]
  15. CLONIDINE [Concomitant]
  16. NASONEX [Concomitant]
  17. FIORINAL [Concomitant]
  18. AMARYL [Concomitant]
  19. AVAPRO [Concomitant]
  20. INDERAL [Concomitant]
  21. EFFEXOR [Concomitant]
  22. LIPITOR [Concomitant]
  23. NOVOLOG [Concomitant]
  24. LANTUS [Concomitant]
  25. LEXAPRO [Concomitant]
  26. DIOVAN [Concomitant]
  27. REQUIP [Concomitant]
  28. TRAZODONE [Concomitant]
  29. OXYCODONE [Concomitant]
  30. PRIMIDONE [Concomitant]
  31. PREDNISONE TAB [Concomitant]

REACTIONS (8)
  - BLOOD CHOLESTEROL INCREASED [None]
  - BLOOD TRIGLYCERIDES INCREASED [None]
  - CARDIAC DISORDER [None]
  - CHEST PAIN [None]
  - CONVULSION [None]
  - CORONARY ARTERY DISEASE [None]
  - DIABETES MELLITUS [None]
  - MITRAL VALVE PROLAPSE [None]
